FAERS Safety Report 5352373-3 (Version None)
Quarter: 2007Q2

REPORT INFORMATION
  Report Type: 
  Country: None (occurrence: None)
  Receive Date: 20070607
  Receipt Date: 20070529
  Transmission Date: 20071010
  Serious: Yes (Disabling, Other)
  Sender: FDA-Public Use
  Company Number: GXKR2007GB04708

PATIENT
  Age: 29 Year
  Sex: Female
  Weight: 44 kg

DRUGS (4)
  1. FLUOXETINE [Suspect]
     Indication: DEPRESSION
     Dosage: 60 MG, QD, ORAL
     Route: 048
  2. BECLOMETHASONE DIPROPIONATE [Concomitant]
  3. RANITIDINE [Concomitant]
  4. SALBUTAMOL SULFATE (SALBUTAMOL SULFATE) [Concomitant]

REACTIONS (2)
  - DRUG DOSE OMISSION [None]
  - DRUG WITHDRAWAL SYNDROME [None]
